FAERS Safety Report 4387522-7 (Version None)
Quarter: 2004Q2

REPORT INFORMATION
  Report Type: 
  Country: None (occurrence: None)
  Receive Date: 20040630
  Receipt Date: 20040503
  Transmission Date: 20050107
  Serious: No
  Sender: FDA-Public Use
  Company Number: US-GLAXOSMITHKLINE-A0509239A

PATIENT
  Age: 77 Year
  Sex: Female

DRUGS (5)
  1. ADVAIR HFA [Suspect]
     Dosage: 500MCG PER DAY
     Route: 055
     Dates: start: 20040401, end: 20040401
  2. GLUCOTROL [Concomitant]
  3. CALAN [Concomitant]
  4. STEROIDS [Concomitant]
  5. DIURETICS [Concomitant]

REACTIONS (2)
  - ABDOMINAL PAIN UPPER [None]
  - HEADACHE [None]
